FAERS Safety Report 7456106-6 (Version None)
Quarter: 2011Q2

REPORT INFORMATION
  Report Type: 
  Country: None (occurrence: None)
  Receive Date: 20110503
  Receipt Date: 20110428
  Transmission Date: 20111010
  Serious: Yes (Hospitalization)
  Sender: FDA-Public Use
  Company Number: US-BRISTOL-MYERS SQUIBB COMPANY-15704976

PATIENT
  Age: 65 Year
  Sex: Male
  Weight: 84 kg

DRUGS (1)
  1. IPILIMUMAB [Suspect]
     Indication: MALIGNANT MELANOMA
     Dosage: 10MG/KG IS THE STRENGTH. OVER 90 MIN ON DAY 1. RECENT INFU:30MAR11
     Route: 042
     Dates: start: 20110216

REACTIONS (4)
  - PLEURAL EFFUSION [None]
  - MUSCULAR WEAKNESS [None]
  - FATIGUE [None]
  - DECREASED APPETITE [None]
